FAERS Safety Report 22396945 (Version 3)
Quarter: 2023Q2

REPORT INFORMATION
  Report Type: Spontaneous
  Country: US (occurrence: US)
  Receive Date: 20230602
  Receipt Date: 20230630
  Transmission Date: 20230722
  Serious: No
  Sender: FDA-Public Use
  Company Number: US-APIL-2312712US

PATIENT
  Sex: Female

DRUGS (2)
  1. LINZESS [Suspect]
     Active Substance: LINACLOTIDE
     Indication: Constipation
     Dosage: 290 MICROGRAM
     Route: 048
  2. LINZESS [Suspect]
     Active Substance: LINACLOTIDE
     Indication: Constipation
     Dosage: 72 MICROGRAM
     Route: 048

REACTIONS (18)
  - Feeling abnormal [Recovered/Resolved]
  - Abdominal pain upper [Unknown]
  - Wrong technique in product usage process [Unknown]
  - Dehydration [Unknown]
  - Dry throat [Unknown]
  - Diverticulum [Unknown]
  - Flatulence [Unknown]
  - Diarrhoea [Unknown]
  - Anxiety [Unknown]
  - Illness [Unknown]
  - Chest pain [Unknown]
  - Gastrooesophageal reflux disease [Unknown]
  - Tongue dry [Unknown]
  - Dysphagia [Unknown]
  - Tongue coated [Unknown]
  - Pharyngeal disorder [Unknown]
  - Therapeutic product effect incomplete [Unknown]
  - Unevaluable event [Unknown]
